FAERS Safety Report 7716449-5 (Version None)
Quarter: 2011Q3

REPORT INFORMATION
  Report Type: 
  Country: None (occurrence: None)
  Receive Date: 20110829
  Receipt Date: 20110823
  Transmission Date: 20111222
  Serious: Yes (Other)
  Sender: FDA-Public Use
  Company Number: PHHY2011KR74158

PATIENT
  Sex: Male

DRUGS (2)
  1. STALEVO 100 [Suspect]
     Indication: PARKINSON'S DISEASE
     Dosage: UNK UKN, UNK
     Route: 048
  2. COMTAN [Concomitant]

REACTIONS (3)
  - PROSTATE CANCER [None]
  - METASTASES TO BONE [None]
  - PATHOLOGICAL FRACTURE [None]
